FAERS Safety Report 16487462 (Version 1)
Quarter: 2019Q3

REPORT INFORMATION
  Report Type: Spontaneous
  Country: US (occurrence: US)
  Receive Date: 20190626
  Receipt Date: 20190626
  Transmission Date: 20191004
  Serious: Yes (Life-Threatening)
  Sender: FDA-Public Use
  Company Number: None

PATIENT
  Age: 58 Year
  Sex: Female
  Weight: 119.7 kg

DRUGS (2)
  1. AXITINIB [Suspect]
     Active Substance: AXITINIB
  2. PEMBROLIZUMAB. [Concomitant]
     Active Substance: PEMBROLIZUMAB

REACTIONS (2)
  - Blood pressure increased [None]
  - Subarachnoid haemorrhage [None]

NARRATIVE: CASE EVENT DATE: 20190620
